FAERS Safety Report 4922214-4 (Version None)
Quarter: 2006Q1

REPORT INFORMATION
  Report Type: 
  Country: None (occurrence: None)
  Receive Date: 20060224
  Receipt Date: 20050428
  Transmission Date: 20060701
  Serious: Yes (Death)
  Sender: FDA-Public Use
  Company Number: US-MERCK-0505USA00143

PATIENT
  Age: 62 Year
  Sex: Male
  Weight: 105 kg

DRUGS (5)
  1. VIOXX [Suspect]
     Indication: OSTEOARTHRITIS
     Route: 048
     Dates: start: 20011003
  2. VIOXX [Suspect]
     Indication: ARTHRALGIA
     Route: 048
     Dates: start: 20011003
  3. ACCUPRIL [Concomitant]
     Indication: HYPERTENSION
     Route: 065
  4. ASPIRIN [Concomitant]
     Route: 065
  5. IBUPROFEN [Concomitant]
     Route: 065

REACTIONS (3)
  - CARDIAC ARREST [None]
  - OVERDOSE [None]
  - THROMBOSIS [None]
